FAERS Safety Report 7554697-8 (Version None)
Quarter: 2011Q2

REPORT INFORMATION
  Report Type: 
  Country: None (occurrence: None)
  Receive Date: 20110617
  Receipt Date: 20110613
  Transmission Date: 20111010
  Serious: Yes (Other)
  Sender: FDA-Public Use
  Company Number: US-PFIZER INC-2011128907

PATIENT
  Sex: Female
  Weight: 73 kg

DRUGS (5)
  1. SIMVASTATIN [Concomitant]
     Indication: BLOOD CHOLESTEROL INCREASED
     Dosage: UNK, DAILY
  2. LISINOPRIL [Concomitant]
     Indication: HYPERTENSION
     Dosage: 20 MG, DAILY
  3. AROMASIN [Suspect]
     Indication: BREAST CANCER
     Dosage: 25 MG, DAILY
     Dates: start: 20060101, end: 20110301
  4. FEMARA [Suspect]
     Indication: BREAST CANCER
     Dosage: UNK,DAILY
     Dates: start: 20040701, end: 20060101
  5. LISINOPRIL [Concomitant]
     Dosage: 20 MG, DAILY
     Dates: start: 20040101

REACTIONS (4)
  - ARTHRALGIA [None]
  - BONE DISORDER [None]
  - NASOPHARYNGITIS [None]
  - MYALGIA [None]
